FAERS Safety Report 14700461 (Version 3)
Quarter: 2018Q2

REPORT INFORMATION
  Report Type: Report from Study
  Country: ES (occurrence: ES)
  Receive Date: 20180330
  Receipt Date: 20180405
  Transmission Date: 20180711
  Serious: Yes (Hospitalization)
  Sender: FDA-Public Use
  Company Number: ES-CONCORDIA PHARMACEUTICALS INC.-E2B_00010785

PATIENT
  Age: 83 Year
  Sex: Male

DRUGS (4)
  1. DUODART [Concomitant]
     Active Substance: DUTASTERIDE\TAMSULOSIN
  2. SEGURIL [Concomitant]
     Active Substance: FUROSEMIDE
  3. DIGOXIN. [Suspect]
     Active Substance: DIGOXIN
     Dosage: 1/2 D
     Route: 048
     Dates: start: 201510, end: 20160422
  4. BISOPROLOL 2,5 MG COMPRIMIDO [Suspect]
     Active Substance: BISOPROLOL
     Dosage: 1/2-0-1/2
     Route: 048
     Dates: start: 201510

REACTIONS (1)
  - Bradycardia [Recovered/Resolved]

NARRATIVE: CASE EVENT DATE: 20160422
